FAERS Safety Report 9015852 (Version 1)
Quarter: 2013Q1

REPORT INFORMATION
  Report Type: Report from Study
  Country: GB (occurrence: GB)
  Receive Date: 20130116
  Receipt Date: 20130116
  Transmission Date: 20140127
  Serious: Yes (Hospitalization)
  Sender: FDA-Public Use
  Company Number: GB-PFIZER INC-2013008788

PATIENT
  Age: 66 Year
  Sex: 0

DRUGS (8)
  1. CYCLOPHOSPHAMIDE [Suspect]
     Indication: CHRONIC LYMPHOCYTIC LEUKAEMIA
     Dosage: 100 MG 1 PER 1 DAYS
     Route: 048
     Dates: start: 20120117
  2. CYCLOPHOSPHAMIDE [Suspect]
     Dosage: 250 MG OD X5
     Route: 048
     Dates: start: 20120420
  3. MITOXANTRONE HCL [Suspect]
     Indication: CHRONIC LYMPHOCYTIC LEUKAEMIA
     Dosage: 10 MG, SINGLE
     Route: 042
     Dates: start: 20120116
  4. MITOXANTRONE HCL [Suspect]
     Dosage: 10 MG, SINGLE
     Route: 042
     Dates: start: 20120416
  5. FLUDARABINE [Suspect]
     Indication: CHRONIC LYMPHOCYTIC LEUKAEMIA
     Dosage: 40 MG 1 PER 1 DAYS
     Route: 048
     Dates: start: 20120117
  6. FLUDARABINE [Suspect]
     Dosage: 40 MG OD X5
     Route: 048
     Dates: start: 20120420
  7. RITUXIMAB [Suspect]
     Indication: CHRONIC LYMPHOCYTIC LEUKAEMIA
     Dosage: 830 MG, SINGLE
     Route: 042
     Dates: start: 20120116
  8. RITUXIMAB [Suspect]
     Dosage: 620 MG, SINGLE
     Route: 042
     Dates: start: 20120416

REACTIONS (2)
  - Neutropenic sepsis [Recovered/Resolved]
  - Pyrexia [Recovered/Resolved]
